FAERS Safety Report 8443180-3 (Version None)
Quarter: 2012Q2

REPORT INFORMATION
  Report Type: 
  Country: None (occurrence: None)
  Receive Date: 20120616
  Receipt Date: 20120605
  Transmission Date: 20120825
  Serious: Yes (Other)
  Sender: FDA-Public Use
  Company Number: JP-VERTEX PHARMACEUTICALS INC.-AE-2012-008090

PATIENT
  Age: 27 Year
  Sex: Male

DRUGS (7)
  1. PEGINTERFERON ALFA-2A [Concomitant]
     Indication: HEPATITIS C
     Route: 051
     Dates: start: 20120214
  2. REBETOL [Concomitant]
     Route: 048
     Dates: start: 20120501
  3. REBETOL [Concomitant]
     Route: 048
     Dates: start: 20120307, end: 20120430
  4. TELAVIC (TELAPREVIR) [Suspect]
     Route: 048
     Dates: start: 20120220, end: 20120508
  5. REBETOL [Concomitant]
     Indication: HEPATITIS C
     Route: 048
     Dates: start: 20120214, end: 20120306
  6. TELAVIC (TELAPREVIR) [Suspect]
     Indication: HEPATITIS C
     Route: 048
     Dates: start: 20120214, end: 20120219
  7. CONFATANIN [Concomitant]
     Route: 048
     Dates: start: 20120213

REACTIONS (4)
  - RASH [None]
  - HYPERURICAEMIA [None]
  - PSYCHOSOMATIC DISEASE [None]
  - HAEMOGLOBIN DECREASED [None]
